FAERS Safety Report 10441899 (Version 1)
Quarter: 2014Q3

REPORT INFORMATION
  Report Type: Spontaneous
  Country: US (occurrence: US)
  Receive Date: 20140909
  Receipt Date: 20140909
  Transmission Date: 20150326
  Serious: Yes (Hospitalization)
  Sender: FDA-Public Use
  Company Number: US-GLAXOSMITHKLINE-A1087498A

PATIENT
  Age: 58 Year
  Sex: Female

DRUGS (14)
  1. XANAX [Concomitant]
     Active Substance: ALPRAZOLAM
  2. ASPIRIN. [Concomitant]
     Active Substance: ASPIRIN
  3. CELEXA [Concomitant]
     Active Substance: CITALOPRAM HYDROBROMIDE
  4. SPIRIVA [Concomitant]
     Active Substance: TIOTROPIUM BROMIDE MONOHYDRATE
  5. UNSPECIFIED INHALER [Suspect]
     Active Substance: UNSPECIFIED INGREDIENT
     Indication: SLEEP APNOEA SYNDROME
  6. OXYGEN. [Concomitant]
     Active Substance: OXYGEN
  7. OXYCONTIN [Concomitant]
     Active Substance: OXYCODONE HYDROCHLORIDE
  8. CLOPIDOGREL [Concomitant]
     Active Substance: CLOPIDOGREL BISULFATE
  9. LEVOTHYROXIN [Concomitant]
     Active Substance: LEVOTHYROXINE
  10. LAMICTAL [Suspect]
     Active Substance: LAMOTRIGINE
     Indication: MOOD SWINGS
     Dosage: 200MG PER DAY
     Route: 048
     Dates: start: 2005
  11. METOPROLOL [Concomitant]
     Active Substance: METOPROLOL
  12. ALBUTEROL. [Concomitant]
     Active Substance: ALBUTEROL
  13. NEURONTIN [Concomitant]
     Active Substance: GABAPENTIN
  14. CONTINUOUS POSITIVE AIRWAY PRESSURE [Concomitant]
     Active Substance: DEVICE

REACTIONS (11)
  - Cardiac failure congestive [Unknown]
  - Drug withdrawal syndrome [Unknown]
  - Head injury [Unknown]
  - Fall [Unknown]
  - Chest pain [Unknown]
  - Migraine [Not Recovered/Not Resolved]
  - Myocardial infarction [Unknown]
  - Stent placement [Unknown]
  - Sensory disturbance [Unknown]
  - Visual impairment [Unknown]
  - Rib fracture [Unknown]

NARRATIVE: CASE EVENT DATE: 2005
